FAERS Safety Report 25122444 (Version 1)
Quarter: 2025Q1

REPORT INFORMATION
  Report Type: Report from Study
  Country: US (occurrence: US)
  Receive Date: 20250326
  Receipt Date: 20250326
  Transmission Date: 20250408
  Serious: Yes (Other)
  Sender: ROCHE
  Company Number: US-ROCHE-10000236330

PATIENT
  Sex: Female

DRUGS (1)
  1. CELLCEPT [Suspect]
     Active Substance: MYCOPHENOLATE MOFETIL
     Indication: Lupus nephritis
     Route: 065

REACTIONS (10)
  - Off label use [Unknown]
  - Somnolence [Unknown]
  - Dizziness [Unknown]
  - Brain fog [Unknown]
  - Pain [Unknown]
  - Pain of skin [Unknown]
  - Pain in extremity [Unknown]
  - Alopecia [Unknown]
  - Renal failure [Unknown]
  - Abdominal pain [Unknown]
